FAERS Safety Report 12596863 (Version 2)
Quarter: 2016Q3

REPORT INFORMATION
  Report Type: Spontaneous
  Country: FR (occurrence: FR)
  Receive Date: 20160726
  Receipt Date: 20160906
  Transmission Date: 20161109
  Serious: Yes (Hospitalization)
  Sender: FDA-Public Use
  Company Number: FR-TEVA-678421ISR

PATIENT
  Age: 62 Year
  Sex: Female
  Weight: 60 kg

DRUGS (11)
  1. LANSOPRAZOLE ZYDUS [Concomitant]
     Dosage: 1 DOSAGE FORMS DAILY;
  2. INEXIUM 40 MG [Suspect]
     Active Substance: ESOMEPRAZOLE
     Indication: ABDOMINAL PAIN UPPER
     Dosage: 40 MILLIGRAM DAILY;
     Route: 042
     Dates: start: 20160418, end: 20160423
  3. LYRICA 25 MG [Concomitant]
     Dosage: .5 DOSAGE FORMS DAILY; IN THE EVENING
  4. INORIAL 20 MG [Concomitant]
     Active Substance: BILASTINE
     Dosage: 1 DOSAGE FORMS DAILY; IN THE EVENING
  5. BREXIN 20 MG [Concomitant]
     Dosage: 1 DOSAGE FORMS DAILY;
  6. LYRICA 25 MG [Concomitant]
     Dosage: 1 DOSAGE FORMS DAILY; IN THE EVENING
  7. SPASFON [Suspect]
     Active Substance: PHLOROGLUCINOL
     Indication: ABDOMINAL PAIN UPPER
     Route: 042
     Dates: start: 20160418, end: 20160423
  8. TRAMADOL. [Suspect]
     Active Substance: TRAMADOL
     Indication: ABDOMINAL PAIN UPPER
     Route: 042
     Dates: start: 20160418, end: 20160423
  9. PARACETAMOL 1 GR [Suspect]
     Active Substance: ACETAMINOPHEN
     Indication: ABDOMINAL PAIN UPPER
     Dosage: 2 DOSAGE FORMS DAILY;
     Route: 042
     Dates: start: 20160418, end: 20160423
  10. AMLOR 10 MG [Suspect]
     Active Substance: AMLODIPINE BESYLATE
     Indication: HYPERTENSION
     Dosage: 10 MILLIGRAM DAILY;
     Route: 048
     Dates: start: 20160418, end: 20160423
  11. CHOLECALCIFEROL [Concomitant]
     Active Substance: CHOLECALCIFEROL
     Dosage: 1 AMPOULE EVERY 3 MONTHS

REACTIONS (3)
  - Agranulocytosis [Recovered/Resolved]
  - Leukopenia [Recovered/Resolved]
  - Haemoglobin decreased [None]

NARRATIVE: CASE EVENT DATE: 20160419
